FAERS Safety Report 11860252 (Version 2)
Quarter: 2016Q1

REPORT INFORMATION
  Report Type: Report from Study
  Country: US (occurrence: US)
  Receive Date: 20151222
  Receipt Date: 20160323
  Transmission Date: 20160526
  Serious: No
  Sender: FDA-Public Use
  Company Number: PHEH2015US026456

PATIENT
  Sex: Male
  Weight: 95.24 kg

DRUGS (1)
  1. GILENYA [Suspect]
     Active Substance: FINGOLIMOD HYDROCHLORIDE
     Indication: MULTIPLE SCLEROSIS
     Dosage: 0.5 MG, QD
     Route: 048
     Dates: start: 20151104

REACTIONS (5)
  - Muscle tightness [Recovering/Resolving]
  - Chills [Unknown]
  - Memory impairment [Unknown]
  - Pain in jaw [Recovering/Resolving]
  - Muscle spasms [Recovering/Resolving]
